FAERS Safety Report 6122103-6 (Version None)
Quarter: 2009Q1

REPORT INFORMATION
  Report Type: 
  Country: None (occurrence: None)
  Receive Date: 20090316
  Receipt Date: 20090316
  Transmission Date: 20090719
  Serious: No
  Sender: FDA-Public Use
  Company Number: None

PATIENT
  Age: 55 Year
  Sex: Male
  Weight: 63.5036 kg

DRUGS (1)
  1. SIMVASTATIN [Suspect]
     Indication: BLOOD CHOLESTEROL INCREASED
     Dosage: 40 MG DAILY PO
     Route: 048
     Dates: start: 20061010, end: 20090314

REACTIONS (3)
  - ALOPECIA [None]
  - INFERTILITY MALE [None]
  - MUSCULAR WEAKNESS [None]
